FAERS Safety Report 11881433 (Version 1)
Quarter: 2015Q4

REPORT INFORMATION
  Report Type: Spontaneous
  Country: CZ (occurrence: CZ)
  Receive Date: 20151231
  Receipt Date: 20151231
  Transmission Date: 20160305
  Serious: Yes (Hospitalization, Other)
  Sender: FDA-Public Use
  Company Number: CZ-AMGEN-CZESP2015139398

PATIENT
  Age: 80 Year
  Sex: Female

DRUGS (7)
  1. PRESTARIUM NEO [Concomitant]
     Active Substance: PERINDOPRIL ARGININE
     Dosage: UNK UNK, QD
     Route: 048
  2. PRESTARIUM NEO COMBI [Concomitant]
     Active Substance: INDAPAMIDE\PERINDOPRIL ARGININE
     Dosage: 5 MG/1,25 MG, QD
     Route: 048
  3. EUTHYROX [Concomitant]
     Active Substance: LEVOTHYROXINE SODIUM
     Dosage: 150 MUG, QD
     Route: 048
  4. MILURIT [Concomitant]
     Active Substance: ALLOPURINOL
     Dosage: UNK UNK, QD
     Route: 048
  5. PROLIA [Suspect]
     Active Substance: DENOSUMAB
     Indication: PRODUCT USED FOR UNKNOWN INDICATION
     Dosage: 60 MG, Q6MO
     Route: 058
  6. SORVASTA [Concomitant]
     Dosage: 10 MG, QD
     Route: 048
  7. AMICLOTON [Concomitant]
     Dosage: UNK UNK, QD
     Route: 048

REACTIONS (2)
  - Arthralgia [Recovered/Resolved]
  - Femur fracture [Recovered/Resolved]

NARRATIVE: CASE EVENT DATE: 201412
